FAERS Safety Report 9298172 (Version 1)
Quarter: 2013Q2

REPORT INFORMATION
  Report Type: Spontaneous
  Country: AR (occurrence: AR)
  Receive Date: 20130520
  Receipt Date: 20130520
  Transmission Date: 20140414
  Serious: Yes (Hospitalization)
  Sender: FDA-Public Use
  Company Number: AR-NOVOPROD-377021

PATIENT
  Sex: Female
  Weight: 2.19 kg

DRUGS (11)
  1. LEVEMIR FLEXPEN [Suspect]
     Indication: TYPE 2 DIABETES MELLITUS
     Dosage: 65 IU, QD
     Route: 064
  2. LEVEMIR FLEXPEN [Suspect]
     Indication: TYPE 2 DIABETES MELLITUS
     Dosage: 65 IU, QD
     Route: 064
  3. LEVEMIR FLEXPEN [Suspect]
     Dosage: 70 IU, QD
     Route: 064
  4. LEVEMIR FLEXPEN [Suspect]
     Dosage: 70 IU, QD
     Route: 064
  5. LEVEMIR FLEXPEN [Suspect]
     Dosage: 76 IU, QD
     Route: 064
  6. LEVEMIR FLEXPEN [Suspect]
     Dosage: 76 IU, QD
     Route: 064
  7. LEVEMIR FLEXPEN [Suspect]
     Dosage: 88 IU, QD
     Route: 064
  8. LEVEMIR FLEXPEN [Suspect]
     Dosage: 88 IU, QD
     Route: 064
  9. VICTOZA [Suspect]
     Indication: TYPE 2 DIABETES MELLITUS
     Dosage: 1.2 MG, QD
     Route: 064
     Dates: end: 20120918
  10. NOVORAPID [Suspect]
     Indication: TYPE 2 DIABETES MELLITUS
     Dosage: UNK
     Dates: end: 20130410
  11. ROSUVASTATIN [Concomitant]
     Indication: DYSLIPIDAEMIA
     Dosage: 5 MG, QD
     Route: 064
     Dates: end: 20120918

REACTIONS (4)
  - Respiratory distress [Unknown]
  - Feeding disorder neonatal [Unknown]
  - Premature baby [Unknown]
  - Foetal exposure during pregnancy [Unknown]
